FAERS Safety Report 6686223-X (Version None)
Quarter: 2010Q2

REPORT INFORMATION
  Report Type: 
  Country: None (occurrence: None)
  Receive Date: 20100415
  Receipt Date: 20100415
  Transmission Date: 20101027
  Serious: Yes (Other)
  Sender: FDA-Public Use
  Company Number: None

PATIENT
  Age: 69 Year
  Sex: Male
  Weight: 77.1115 kg

DRUGS (1)
  1. FLOMAX [Suspect]
     Indication: PROSTATIC DISORDER
     Dosage: ONE DAILY DAILY PO
     Route: 048
     Dates: start: 20080110, end: 20100401

REACTIONS (5)
  - DIZZINESS [None]
  - GINGIVAL SWELLING [None]
  - GLOSSODYNIA [None]
  - LOSS OF LIBIDO [None]
  - STOMATITIS [None]
